FAERS Safety Report 5577989-0 (Version None)
Quarter: 2007Q4

REPORT INFORMATION
  Report Type: 
  Country: None (occurrence: None)
  Receive Date: 20071231
  Receipt Date: 20071218
  Transmission Date: 20080405
  Serious: Yes (Hospitalization, Other)
  Sender: FDA-Public Use
  Company Number: US-ROCHE-523711

PATIENT
  Age: 71 Year
  Sex: Female
  Weight: 65.3 kg

DRUGS (7)
  1. BONIVA [Suspect]
     Indication: OSTEOPOROSIS
     Dosage: PURCHASED ON: 26-JUL-2006, 23-AUG-2006, 02-NOV-2006, 09-DEC-2006, 05-MAR-2007, 05-APR-2007, 01-MAY-+
     Route: 065
     Dates: start: 20060806, end: 20071001
  2. BONIVA [Suspect]
     Route: 065
     Dates: start: 20061101, end: 20061206
  3. BONIVA [Suspect]
     Route: 065
     Dates: start: 20070306, end: 20071001
  4. MULTI-VITAMINS [Concomitant]
  5. CALCIUM [Concomitant]
  6. ASPIRIN [Concomitant]
  7. METAMUCIL [Concomitant]

REACTIONS (5)
  - BASAL CELL CARCINOMA [None]
  - GASTROOESOPHAGEAL REFLUX DISEASE [None]
  - MUSCULOSKELETAL CHEST PAIN [None]
  - PAIN IN EXTREMITY [None]
  - TOOTH EXTRACTION [None]
